FAERS Safety Report 6704055-0 (Version None)
Quarter: 2010Q2

REPORT INFORMATION
  Report Type: 
  Country: None (occurrence: None)
  Receive Date: 20100430
  Receipt Date: 20100210
  Transmission Date: 20101027
  Serious: Yes (Other)
  Sender: FDA-Public Use
  Company Number: US-BAYER-201017199NA

PATIENT
  Age: 45 Year
  Sex: Female
  Weight: 74 kg

DRUGS (19)
  1. MAGNEVIST [Suspect]
     Indication: NUCLEAR MAGNETIC RESONANCE IMAGING ABDOMINAL
     Route: 042
     Dates: start: 20010116, end: 20010116
  2. OMNISCAN [Suspect]
     Indication: NUCLEAR MAGNETIC RESONANCE IMAGING
     Route: 042
     Dates: start: 20060526, end: 20060526
  3. OMNISCAN [Suspect]
     Dosage: TOTAL DAILY DOSE: 60 ML
     Dates: start: 20050427, end: 20050427
  4. OMNISCAN [Suspect]
     Dosage: TOTAL DAILY DOSE: 60 ML
     Dates: start: 20050504, end: 20050504
  5. OMNISCAN [Suspect]
     Dates: start: 20060621, end: 20060621
  6. OMNISCAN [Suspect]
     Dosage: TOTAL DAILY DOSE: 20 ML
     Dates: start: 20060427, end: 20060427
  7. OMNISCAN [Suspect]
     Dosage: TOTAL DAILY DOSE: 20 ML
     Dates: start: 20060610, end: 20060610
  8. COUMADIN [Concomitant]
  9. CALCITRIOL [Concomitant]
  10. LEVOTHROID [Concomitant]
  11. ARANESP [Concomitant]
  12. NEPHROCAPS [Concomitant]
  13. PHOSLO [Concomitant]
  14. PREDNISONE [Concomitant]
  15. CELLCEPT [Concomitant]
  16. EPOGEN [Concomitant]
  17. RENAGAL [Concomitant]
  18. SODIUM BICARBONATE [Concomitant]
  19. BIRTH CONTROL PILLS [Concomitant]

REACTIONS (14)
  - ERYTHEMA [None]
  - FATIGUE [None]
  - GAIT DISTURBANCE [None]
  - LIGAMENT DISORDER [None]
  - MUSCULAR WEAKNESS [None]
  - NEPHROGENIC SYSTEMIC FIBROSIS [None]
  - OEDEMA PERIPHERAL [None]
  - PAIN IN EXTREMITY [None]
  - RASH [None]
  - RASH MACULAR [None]
  - SENSORY DISTURBANCE [None]
  - SKIN DISCOLOURATION [None]
  - SKIN HYPERPIGMENTATION [None]
  - SKIN INDURATION [None]
